FAERS Safety Report 5131856-5 (Version None)
Quarter: 2006Q4

REPORT INFORMATION
  Report Type: 
  Country: None (occurrence: None)
  Receive Date: 20061016
  Receipt Date: 20061010
  Transmission Date: 20070319
  Serious: Yes (Death, Other)
  Sender: FDA-Public Use
  Company Number: 2006123749

PATIENT
  Age: 33 Year
  Sex: Female

DRUGS (3)
  1. GEODON [Suspect]
     Indication: OBSESSIVE-COMPULSIVE DISORDER
  2. PAXIL [Suspect]
  3. SEROQUEL [Suspect]

REACTIONS (4)
  - CARDITIS [None]
  - MYOCARDIAL INFARCTION [None]
  - PANIC DISORDER [None]
  - WEIGHT INCREASED [None]
